FAERS Safety Report 5153782-8 (Version None)
Quarter: 2006Q4

REPORT INFORMATION
  Report Type: 
  Country: None (occurrence: None)
  Receive Date: 20061120
  Receipt Date: 20061024
  Transmission Date: 20070319
  Serious: Yes (Hospitalization)
  Sender: FDA-Public Use
  Company Number: JP-BRISTOL-MYERS SQUIBB COMPANY-13560966

PATIENT
  Age: 56 Year
  Sex: Female

DRUGS (7)
  1. ENDOXAN [Suspect]
     Indication: BREAST CANCER
     Dates: start: 20061017, end: 20061017
  2. METHOTREXATE [Suspect]
     Indication: BREAST CANCER
     Route: 041
     Dates: start: 20021008, end: 20030304
  3. FLUOROURACIL [Suspect]
     Indication: BREAST CANCER
     Route: 041
     Dates: start: 20061017, end: 20061017
  4. FARMORUBICIN [Suspect]
     Indication: BREAST CANCER
     Route: 042
     Dates: start: 20061017, end: 20061017
  5. KYTRIL [Concomitant]
  6. DECADRON [Concomitant]
     Dates: start: 20061017, end: 20061017
  7. TAMOXIFEN CITRATE [Concomitant]
     Dates: start: 20030304

REACTIONS (7)
  - ANAPHYLACTIC SHOCK [None]
  - COLD SWEAT [None]
  - DIZZINESS [None]
  - HEPATIC FUNCTION ABNORMAL [None]
  - MALAISE [None]
  - NAUSEA [None]
  - VOMITING [None]
